FAERS Safety Report 25684371 (Version 1)
Quarter: 2025Q3

REPORT INFORMATION
  Report Type: Spontaneous
  Country: US (occurrence: US)
  Receive Date: 20250815
  Receipt Date: 20250815
  Transmission Date: 20251020
  Serious: No
  Sender: DR REDDYS
  Company Number: US-DRL-USA-USA/2025/07/011455

PATIENT
  Age: 77 Year
  Sex: Male
  Weight: 72.57 kg

DRUGS (1)
  1. HABITROL [Suspect]
     Active Substance: NICOTINE
     Indication: Smoking cessation therapy
     Route: 062
     Dates: start: 20250501

REACTIONS (1)
  - Drug ineffective [Unknown]
